FAERS Safety Report 4767277-4 (Version None)
Quarter: 2005Q3

REPORT INFORMATION
  Report Type: 
  Country: None (occurrence: None)
  Receive Date: 20050913
  Receipt Date: 20050906
  Transmission Date: 20060218
  Serious: Yes (Hospitalization)
  Sender: FDA-Public Use
  Company Number: US-GLAXOSMITHKLINE-A0573136A

PATIENT
  Age: 69 Year
  Sex: Female

DRUGS (15)
  1. AVANDIA [Suspect]
     Dosage: 8MG PER DAY
     Route: 048
     Dates: start: 20030401
  2. FOSINOPRIL SODIUM [Concomitant]
  3. LASIX [Concomitant]
  4. LOPRESSOR [Concomitant]
  5. DIOXIN [Concomitant]
  6. GLIPIZIDE [Concomitant]
  7. METOLAZONE [Concomitant]
  8. LIPITOR [Concomitant]
  9. PRAVACHOL [Concomitant]
  10. ISOSORBID MONONITRATE [Concomitant]
  11. COUMADIN [Concomitant]
  12. POTASSIUM [Concomitant]
  13. STARLIX [Concomitant]
  14. MULTIVITAMIN [Concomitant]
  15. OXYGEN [Concomitant]

REACTIONS (4)
  - COMA [None]
  - DIARRHOEA [None]
  - PNEUMONIA [None]
  - PULMONARY NECROSIS [None]
